FAERS Safety Report 8334647-7 (Version None)
Quarter: 2012Q2

REPORT INFORMATION
  Report Type: 
  Country: None (occurrence: None)
  Receive Date: 20120503
  Receipt Date: 20120425
  Transmission Date: 20120825
  Serious: No
  Sender: FDA-Public Use
  Company Number: US-JNJFOC-20120412657

PATIENT
  Sex: Female

DRUGS (5)
  1. BACTRIM [Concomitant]
     Indication: ANTIBIOTIC THERAPY
     Route: 048
  2. FENTANYL-100 [Suspect]
     Indication: ARTHRITIS
     Route: 062
  3. LYRICA [Concomitant]
     Indication: PAIN
     Route: 048
  4. SINGULAIR [Concomitant]
     Route: 048
  5. NEXIUM [Concomitant]
     Route: 048

REACTIONS (4)
  - DRUG DOSE OMISSION [None]
  - DRUG INEFFECTIVE [None]
  - INAPPROPRIATE SCHEDULE OF DRUG ADMINISTRATION [None]
  - PRODUCT QUALITY ISSUE [None]
